FAERS Safety Report 14562711 (Version 4)
Quarter: 2020Q1

REPORT INFORMATION
  Report Type: Spontaneous
  Country: US (occurrence: US)
  Receive Date: 20180222
  Receipt Date: 20200207
  Transmission Date: 20200409
  Serious: Yes (Hospitalization)
  Sender: FDA-Public Use
  Company Number: US-WEST-WARD PHARMACEUTICALS CORP.-US-H14001-18-01192

PATIENT
  Age: 54 Year
  Sex: Female
  Weight: 48.5 kg

DRUGS (9)
  1. MSB0010718C/PLACEBO [Suspect]
     Active Substance: AVELUMAB
     Indication: SQUAMOUS CELL CARCINOMA OF HEAD AND NECK
     Dosage: DAYS 8, 25 AND 39 OF CRT PHASE
     Route: 041
     Dates: start: 20180103
  2. CISPLATIN. [Suspect]
     Active Substance: CISPLATIN
     Indication: SQUAMOUS CELL CARCINOMA OF HEAD AND NECK
     Dosage: DAYS 1, 22 AND 43 OF CRT PHASE
     Route: 041
     Dates: start: 20171127, end: 20171127
  3. COLACE [Concomitant]
     Active Substance: DOCUSATE SODIUM
     Indication: PROPHYLAXIS
     Route: 065
  4. FENTANYL. [Concomitant]
     Active Substance: FENTANYL
     Indication: PAIN
     Route: 065
  5. AMBIEN [Concomitant]
     Active Substance: ZOLPIDEM TARTRATE
     Indication: INSOMNIA
     Route: 065
  6. AMLODIPINE [Concomitant]
     Active Substance: AMLODIPINE BESYLATE
     Indication: HYPERTENSION
     Route: 065
  7. PERIDEX [Concomitant]
     Active Substance: CHLORHEXIDINE GLUCONATE
     Indication: PAIN
     Route: 065
  8. HYCET [Concomitant]
     Active Substance: ACETAMINOPHEN\HYDROCODONE BITARTRATE
     Indication: PAIN
     Route: 065
  9. MSB0010718C/PLACEBO [Suspect]
     Active Substance: AVELUMAB
     Route: 041

REACTIONS (2)
  - Sepsis [Recovered/Resolved]
  - Pneumonia [Recovered/Resolved]

NARRATIVE: CASE EVENT DATE: 20180131
